FAERS Safety Report 9433489 (Version 1)
Quarter: 2013Q3

REPORT INFORMATION
  Report Type: Spontaneous
  Country: US (occurrence: US)
  Receive Date: 20130731
  Receipt Date: 20130731
  Transmission Date: 20140515
  Serious: No
  Sender: FDA-Public Use
  Company Number: US-TEVA-422041USA

PATIENT
  Age: 70 Year
  Sex: Female

DRUGS (8)
  1. TREANDA [Suspect]
     Indication: B-CELL LYMPHOMA
     Dosage: CYCLE 1
     Route: 042
  2. TREANDA [Suspect]
     Dosage: CYCLE 2
     Route: 042
  3. TREANDA [Suspect]
     Dosage: CYCLE 3
     Route: 042
  4. TREANDA [Suspect]
     Dosage: CYCLE 4
     Route: 042
  5. RITUXIMAB [Concomitant]
     Indication: B-CELL LYMPHOMA
     Dosage: CYCLE 1
  6. RITUXIMAB [Concomitant]
     Dosage: CYCLE 2
  7. RITUXIMAB [Concomitant]
     Dosage: CYCLE 3
  8. RITUXIMAB [Concomitant]
     Dosage: CYCLE 4

REACTIONS (2)
  - Pyrexia [Recovered/Resolved]
  - Infection [Unknown]
